FAERS Safety Report 4800027-1 (Version None)
Quarter: 2005Q4

REPORT INFORMATION
  Report Type: 
  Country: None (occurrence: None)
  Receive Date: 20051017
  Receipt Date: 20051005
  Transmission Date: 20060501
  Serious: Yes (Disabling, Other)
  Sender: FDA-Public Use
  Company Number: US-JNJFOC-20051001201

PATIENT
  Sex: Female

DRUGS (4)
  1. REMICADE [Suspect]
     Indication: RHEUMATOID ARTHRITIS
     Route: 042
  2. PLAQUENIL [Concomitant]
  3. CELEBREX [Concomitant]
  4. METHOTREXATE [Concomitant]

REACTIONS (3)
  - BLINDNESS [None]
  - RETINAL HAEMORRHAGE [None]
  - RETINAL TEAR [None]
